FAERS Safety Report 20011155 (Version 2)
Quarter: 2021Q4

REPORT INFORMATION
  Report Type: Spontaneous
  Country: US (occurrence: US)
  Receive Date: 20211028
  Receipt Date: 20211112
  Transmission Date: 20220304
  Serious: Yes (Death)
  Sender: FDA-Public Use
  Company Number: US-GW PHARMA-202110USGW05162

PATIENT

DRUGS (1)
  1. EPIDIOLEX [Suspect]
     Active Substance: CANNABIDIOL
     Indication: Lennox-Gastaut syndrome
     Dosage: 9.45 MG/KG/DAY, 600 MILLIGRAM, BID
     Route: 048
     Dates: start: 201901

REACTIONS (2)
  - Respiratory failure [Fatal]
  - Cytogenetic abnormality [Fatal]

NARRATIVE: CASE EVENT DATE: 20211012
